FAERS Safety Report 4939312-1 (Version None)
Quarter: 2006Q1

REPORT INFORMATION
  Report Type: 
  Country: None (occurrence: None)
  Receive Date: 20060310
  Receipt Date: 20060222
  Transmission Date: 20060701
  Serious: Yes (Hospitalization)
  Sender: FDA-Public Use
  Company Number: 2006AP00950

PATIENT
  Age: 61 Year
  Sex: Female

DRUGS (4)
  1. CRESTOR [Suspect]
     Indication: HYPERCHOLESTEROLAEMIA
     Route: 048
     Dates: start: 20060206
  2. MAGNESIUM OXIDE [Concomitant]
     Route: 048
     Dates: start: 20041129
  3. GASTER [Concomitant]
     Route: 048
     Dates: start: 20041129
  4. GASMOTIN [Concomitant]
     Route: 048
     Dates: start: 20050822

REACTIONS (1)
  - CHOLELITHIASIS [None]
